FAERS Safety Report 6017267-9 (Version None)
Quarter: 2008Q4

REPORT INFORMATION
  Report Type: 
  Country: None (occurrence: None)
  Receive Date: 20081219
  Receipt Date: 20081209
  Transmission Date: 20090506
  Serious: Yes (Other)
  Sender: FDA-Public Use
  Company Number: 2008S1022115

PATIENT
  Age: 93 Year
  Sex: Female

DRUGS (2)
  1. TEMERIT (NEBIVOLOL) [Suspect]
     Indication: HYPERTENSION
     Dosage: 5 MG;DAILY; ORAL
     Route: 048
     Dates: start: 20081201
  2. LASILIX [Concomitant]

REACTIONS (1)
  - ELECTROCARDIOGRAM ST SEGMENT DEPRESSION [None]
